FAERS Safety Report 7708690-2 (Version None)
Quarter: 2011Q3

REPORT INFORMATION
  Report Type: 
  Country: None (occurrence: None)
  Receive Date: 20110824
  Receipt Date: 20110824
  Transmission Date: 20111222
  Serious: Yes (Life-Threatening)
  Sender: FDA-Public Use
  Company Number: None

PATIENT
  Sex: Male
  Weight: 125 kg

DRUGS (2)
  1. PAXIL CR [Suspect]
  2. PAROXETINE HCL [Suspect]
     Indication: ANXIETY
     Dosage: 1 PILL DAILY ORAL
     Route: 048
     Dates: start: 20110727, end: 20110822

REACTIONS (6)
  - DIARRHOEA [None]
  - LETHARGY [None]
  - ACTIVITIES OF DAILY LIVING IMPAIRED [None]
  - DECREASED INTEREST [None]
  - SUICIDAL IDEATION [None]
  - PRODUCT SUBSTITUTION ISSUE [None]
